FAERS Safety Report 8204577-X (Version None)
Quarter: 2012Q1

REPORT INFORMATION
  Report Type: 
  Country: None (occurrence: None)
  Receive Date: 20120313
  Receipt Date: 20120307
  Transmission Date: 20120608
  Serious: Yes (Other)
  Sender: FDA-Public Use
  Company Number: US-PFIZER INC-2011299983

PATIENT
  Sex: Female

DRUGS (3)
  1. METHADON HCL TAB [Suspect]
     Dosage: UNK
  2. LYRICA [Suspect]
     Dosage: UNK
  3. NEURONTIN [Suspect]
     Dosage: UNK

REACTIONS (7)
  - WITHDRAWAL SYNDROME [None]
  - INSOMNIA [None]
  - PAIN [None]
  - HYPERSENSITIVITY [None]
  - MALAISE [None]
  - MOVEMENT DISORDER [None]
  - COMA [None]
